FAERS Safety Report 24995546 (Version 1)
Quarter: 2025Q1

REPORT INFORMATION
  Report Type: Report from Study
  Country: US (occurrence: US)
  Receive Date: 20250221
  Receipt Date: 20250221
  Transmission Date: 20250409
  Serious: Yes (Death)
  Sender: PFIZER
  Company Number: US-PFIZER INC-202500040515

PATIENT
  Age: 55 Year
  Sex: Female

DRUGS (2)
  1. BRAFTOVI [Suspect]
     Active Substance: ENCORAFENIB
     Dosage: TAKE 6 CAPSULES (450 MG TOTAL) DAILY
     Dates: start: 20240329
  2. MEKTOVI [Suspect]
     Active Substance: BINIMETINIB
     Dosage: TAKE 3 TABLETS (45 MG TOTAL) TWICE DAILY
     Dates: start: 20240329

REACTIONS (1)
  - Death [Fatal]

NARRATIVE: CASE EVENT DATE: 20250204
